FAERS Safety Report 25709204 (Version 1)
Quarter: 2025Q3

REPORT INFORMATION
  Report Type: Spontaneous
  Country: US (occurrence: US)
  Receive Date: 20250821
  Receipt Date: 20250821
  Transmission Date: 20251021
  Serious: No
  Sender: AMGEN
  Company Number: US-AMGEN-USASP2025164947

PATIENT
  Age: 63 Year
  Sex: Female

DRUGS (8)
  1. OTEZLA [Suspect]
     Active Substance: APREMILAST
     Indication: Psoriasis
     Dosage: 30 MILLIGRAM, BID
     Route: 048
     Dates: start: 20250124
  2. ALLOPURINOL [Concomitant]
     Active Substance: ALLOPURINOL
  3. CITALOPRAM [Concomitant]
     Active Substance: CITALOPRAM
  4. VITAMIN D [Concomitant]
     Active Substance: VITAMIN D NOS
  5. BIOTIN [Concomitant]
     Active Substance: BIOTIN
  6. HUMALOG [Concomitant]
     Active Substance: INSULIN LISPRO
  7. LANTUS SOLOSTAR [Concomitant]
     Active Substance: INSULIN GLARGINE
  8. METOPROLOL TARTRATE [Concomitant]
     Active Substance: METOPROLOL TARTRATE

REACTIONS (3)
  - Diarrhoea [Not Recovered/Not Resolved]
  - Headache [Not Recovered/Not Resolved]
  - Pruritus [Recovering/Resolving]

NARRATIVE: CASE EVENT DATE: 20250801
